FAERS Safety Report 15568462 (Version 2)
Quarter: 2018Q4

REPORT INFORMATION
  Report Type: Report from Study
  Country: None (occurrence: CH)
  Receive Date: 20181031
  Receipt Date: 20181215
  Transmission Date: 20190205
  Serious: Yes (Hospitalization)
  Sender: FDA-Public Use
  Company Number: CH-ABBVIE-18S-151-2473776-00

PATIENT
  Age: 67 Year
  Sex: Male

DRUGS (5)
  1. DUODOPA [Suspect]
     Active Substance: CARBIDOPA\LEVODOPA
     Indication: PARKINSONISM
     Route: 050
     Dates: start: 20180730, end: 20180731
  2. DUODOPA [Suspect]
     Active Substance: CARBIDOPA\LEVODOPA
     Dosage: MORNING DOSE: 2.5ML; CONTINUOUS DOSE-DAY: 4.1ML/H; EXTRA DOSE: 1.2ML
     Route: 050
     Dates: start: 20180731, end: 20180807
  3. DUODOPA [Suspect]
     Active Substance: CARBIDOPA\LEVODOPA
     Dosage: MORNING DOSE: 2.5ML; CONTINUOUS DOSE-DAY: 3.2ML/H; EXTRA DOSE: 1.2ML
     Route: 050
     Dates: start: 20180807, end: 20180902
  4. DUODOPA [Suspect]
     Active Substance: CARBIDOPA\LEVODOPA
     Dosage: MORNING DOSE: 2.5ML; CONTINUOUS DOSE-DAY: 3.2ML/H; EXTRA DOSE: 1.2ML; ONE CASSETTE PER DAY
     Route: 050
     Dates: start: 20180903, end: 201809
  5. DUODOPA [Suspect]
     Active Substance: CARBIDOPA\LEVODOPA
     Dosage: MORNING DOSE: 2.5ML; CONTINUOUS DOSE-DAY: 3.2ML/H; EXTRA DOSE: 1.2ML; ONE CASSETTE PER DAY
     Route: 050

REACTIONS (2)
  - Infection [Unknown]
  - Dyskinesia [Recovered/Resolved]

NARRATIVE: CASE EVENT DATE: 20180901
